FAERS Safety Report 14296601 (Version 1)
Quarter: 2017Q4

REPORT INFORMATION
  Report Type: Spontaneous
  Country: FR (occurrence: FR)
  Receive Date: 20171218
  Receipt Date: 20171218
  Transmission Date: 20180321
  Serious: Yes (Disabling)
  Sender: FDA-Public Use
  Company Number: FR-CELGENEUS-FRA-20170903522

PATIENT
  Age: 51 Year
  Sex: Female

DRUGS (7)
  1. OTEZLA [Suspect]
     Active Substance: APREMILAST
     Indication: PSORIASIS
     Dosage: 60 MILLIGRAM
     Route: 048
     Dates: start: 20170901, end: 20170911
  2. ACITRETIN. [Concomitant]
     Active Substance: ACITRETIN
     Indication: PRODUCT USED FOR UNKNOWN INDICATION
     Dosage: 20MG TO 15MG
     Route: 065
  3. DESLANOSIDE [Concomitant]
     Active Substance: DESLANOSIDE
     Indication: ASTHMA
     Route: 065
  4. OTEZLA [Suspect]
     Active Substance: APREMILAST
     Indication: PSORIATIC ARTHROPATHY
  5. BECLOSPIN [Concomitant]
     Active Substance: BECLOMETHASONE DIPROPIONATE
     Indication: ASTHMA
     Route: 065
  6. OTEZLA [Suspect]
     Active Substance: APREMILAST
     Indication: PALMOPLANTAR KERATODERMA
  7. SINGULAIR [Concomitant]
     Active Substance: MONTELUKAST SODIUM
     Indication: ASTHMA
     Route: 065

REACTIONS (3)
  - Arthralgia [Not Recovered/Not Resolved]
  - Oedema peripheral [Recovered/Resolved with Sequelae]
  - Psoriasis [Not Recovered/Not Resolved]

NARRATIVE: CASE EVENT DATE: 2017
